FAERS Safety Report 5038495-5 (Version None)
Quarter: 2006Q2

REPORT INFORMATION
  Report Type: 
  Country: None (occurrence: None)
  Receive Date: 20060626
  Receipt Date: 20060626
  Transmission Date: 20061013
  Serious: Yes (Life-Threatening, Other)
  Sender: FDA-Public Use
  Company Number: None

PATIENT
  Age: 32 Year
  Sex: Male
  Weight: 65.7716 kg

DRUGS (2)
  1. CYMBALTA [Suspect]
     Indication: ABDOMINAL PAIN
     Dosage: 60 MG 2X/DAY PO
     Route: 048
     Dates: start: 20060102, end: 20060520
  2. CYMBALTA [Suspect]
     Dosage: 30 MG 2X DAY PO
     Route: 048
     Dates: start: 20060520, end: 20060623

REACTIONS (11)
  - ABNORMAL DREAMS [None]
  - ANGER [None]
  - DISSOCIATION [None]
  - DRUG WITHDRAWAL SYNDROME [None]
  - HEADACHE [None]
  - NEOPLASM [None]
  - PSYCHIATRIC SYMPTOM [None]
  - SELF-INJURIOUS IDEATION [None]
  - SUICIDAL IDEATION [None]
  - THINKING ABNORMAL [None]
  - VERTIGO [None]
